FAERS Safety Report 7688217 (Version 2)
Quarter: 2013Q4

REPORT INFORMATION
  Report Type: Spontaneous
  Country: US (occurrence: US)
  Receive Date: 20101201
  Receipt Date: 20131231
  Transmission Date: 20140711
  Serious: Yes (Hospitalization)
  Sender: FDA-Public Use
  Company Number: US-RANBAXY-2010US-39578

PATIENT
  Age: 3 Day
  Sex: Male
  Weight: 3 kg

DRUGS (1)
  1. ZIDOVUDINE [Suspect]
     Indication: PRODUCT USED FOR UNKNOWN INDICATION
     Dosage: UNK
     Route: 063

REACTIONS (3)
  - Accidental overdose [Unknown]
  - Blood lactic acid increased [Recovering/Resolving]
  - Bradycardia [Recovered/Resolved]
